FAERS Safety Report 4905268-0 (Version None)
Quarter: 2006Q1

REPORT INFORMATION
  Report Type: 
  Country: None (occurrence: None)
  Receive Date: 20060207
  Receipt Date: 20060207
  Transmission Date: 20060701
  Serious: Yes (Life-Threatening)
  Sender: FDA-Public Use
  Company Number: None

PATIENT
  Age: 58 Year
  Sex: Male
  Weight: 114 kg

DRUGS (2)
  1. RAMIPRIL [Suspect]
     Indication: DIABETES MELLITUS
     Dates: start: 20050901, end: 20051016
  2. RAMIPRIL [Suspect]
     Indication: HYPERTENSION
     Dates: start: 20050901, end: 20051016

REACTIONS (4)
  - ANGIONEUROTIC OEDEMA [None]
  - DYSPNOEA [None]
  - SWELLING FACE [None]
  - SWOLLEN TONGUE [None]
